FAERS Safety Report 8031255-2 (Version None)
Quarter: 2012Q1

REPORT INFORMATION
  Report Type: 
  Country: None (occurrence: None)
  Receive Date: 20120109
  Receipt Date: 20111229
  Transmission Date: 20120608
  Serious: Yes (Hospitalization, Other)
  Sender: FDA-Public Use
  Company Number: US-MERCK-1106USA02917

PATIENT
  Age: 74 Year
  Sex: Female
  Weight: 81 kg

DRUGS (50)
  1. LEVOTHYROXINE SODIUM [Concomitant]
     Route: 048
  2. VITAMINS (UNSPECIFIED) [Concomitant]
     Route: 048
  3. OSTEO-BI-FLEX [Concomitant]
     Route: 065
  4. SKELAXIN [Concomitant]
     Route: 048
  5. GINGER [Concomitant]
     Route: 065
  6. BORAGE OIL AND FLAXSEED AND OMEGA-3 MARINE TRIGLYCERIDES AND SAFFLOWER [Concomitant]
     Route: 065
  7. RESTASIS [Concomitant]
     Route: 047
  8. ANTIOXIDANTS (UNSPECIFIED) [Concomitant]
     Route: 065
  9. SENNA [Concomitant]
     Route: 065
  10. ICAPS [Concomitant]
     Route: 048
  11. FOSAMAX [Suspect]
     Route: 048
     Dates: start: 20080220, end: 20091109
  12. GASTROINTESTINAL PREPARATIONS (UNSPECIFIED) [Concomitant]
     Route: 065
  13. UBIDECARENONE [Concomitant]
     Route: 048
  14. SIMPLY SLEEP [Concomitant]
     Route: 065
  15. LIFE EXTENSION SUPER OMEGA-3 [Concomitant]
     Route: 065
  16. HYDROCODONE [Concomitant]
     Route: 065
  17. EVOXAC [Concomitant]
     Route: 065
  18. AMBIEN [Concomitant]
     Route: 065
  19. CITRUCEL (CALCIUM CARBONATE (+) CHOLECALCIFEROL (+) METHYLCELLULOSE) [Concomitant]
     Route: 065
  20. NEXIUM [Concomitant]
     Route: 048
  21. ANUSOL (BISMUTH OXIDE (+) BISMUTH SUBGALLATE (+) PERUVIAN BALSAM (+) Z [Concomitant]
     Route: 054
  22. FOSAMAX [Suspect]
     Route: 048
     Dates: start: 20060101
  23. FOSAMAX [Suspect]
     Indication: OSTEOPENIA
     Route: 048
     Dates: start: 20060101, end: 20100823
  24. IMMUNOTEC IMMUNOCAL [Concomitant]
     Route: 065
  25. VITAMIN B COMPLEX [Concomitant]
     Route: 048
  26. IBUPROFEN [Concomitant]
     Route: 048
  27. PRAVACHOL [Concomitant]
     Route: 048
  28. OMEPRAZOLE [Concomitant]
     Route: 048
  29. VITAMIN D (UNSPECIFIED) [Concomitant]
     Route: 048
  30. RESTORIL [Concomitant]
     Route: 048
     Dates: end: 20100101
  31. SYNTHROID [Concomitant]
     Indication: HYPOTHYROIDISM
     Route: 048
     Dates: start: 19810101
  32. FLUOXETINE [Concomitant]
     Route: 048
  33. GRAPE SEEDS AND PHOSPHATIDYL CHOLINE AND RESVERATROL [Concomitant]
     Route: 065
  34. ZOCOR [Concomitant]
     Route: 048
  35. CITRACAL + D [Concomitant]
     Route: 065
  36. OMEGA-3 MARINE TRIGLYCERIDES [Concomitant]
     Route: 065
  37. ASCORBIC ACID [Concomitant]
     Route: 065
  38. CORRECTOL [Concomitant]
     Route: 065
  39. GARLIC [Concomitant]
     Route: 065
  40. TEA [Concomitant]
     Route: 048
  41. ANALGESIC (UNSPECIFIED) [Concomitant]
     Route: 048
  42. SIMVASTATIN [Concomitant]
     Route: 065
     Dates: end: 20080101
  43. CELEBREX [Concomitant]
     Route: 048
  44. FOLIC ACID [Concomitant]
     Route: 065
  45. ULTRAM [Concomitant]
     Route: 048
  46. VYTORIN [Concomitant]
     Route: 048
  47. CRANBERRY [Concomitant]
     Route: 065
  48. LIFE EXTENSION SUPER K WITH K2 [Concomitant]
     Route: 048
  49. LORAZEPAM [Concomitant]
     Route: 065
  50. PRILOSEC [Concomitant]
     Route: 048
     Dates: start: 20000101

REACTIONS (28)
  - FALL [None]
  - HYPERTENSION [None]
  - DRY MOUTH [None]
  - MAJOR DEPRESSION [None]
  - LOWER GASTROINTESTINAL HAEMORRHAGE [None]
  - ARTHROPATHY [None]
  - MUSCULOSKELETAL PAIN [None]
  - DRY EYE [None]
  - MUSCLE SPASMS [None]
  - ANAEMIA [None]
  - LIMB DISCOMFORT [None]
  - OSTEOARTHRITIS [None]
  - WEIGHT INCREASED [None]
  - TRIGGER FINGER [None]
  - PHARYNGITIS [None]
  - COUGH [None]
  - DEVICE FAILURE [None]
  - DIABETES MELLITUS [None]
  - HAEMORRHAGIC ANAEMIA [None]
  - GAIT DISTURBANCE [None]
  - PAIN IN EXTREMITY [None]
  - MYALGIA [None]
  - FEMUR FRACTURE [None]
  - TYPE 2 DIABETES MELLITUS [None]
  - UPPER LIMB FRACTURE [None]
  - VENOUS INSUFFICIENCY [None]
  - ACTINIC KERATOSIS [None]
  - HAEMORRHOIDS [None]
